FAERS Safety Report 7435061-9 (Version None)
Quarter: 2011Q2

REPORT INFORMATION
  Report Type: 
  Country: None (occurrence: None)
  Receive Date: 20110425
  Receipt Date: 20110415
  Transmission Date: 20111010
  Serious: Yes (Other)
  Sender: FDA-Public Use
  Company Number: PHHY2011US09926

PATIENT
  Sex: Female
  Weight: 126 kg

DRUGS (1)
  1. GILENYA [Suspect]
     Indication: MULTIPLE SCLEROSIS
     Dosage: 0.5 MG, QD
     Route: 048
     Dates: start: 20101229, end: 20110401

REACTIONS (5)
  - VISION BLURRED [None]
  - VISUAL ACUITY REDUCED [None]
  - MIGRAINE [None]
  - BLOOD PRESSURE INCREASED [None]
  - PHOTOPSIA [None]
